FAERS Safety Report 9541457 (Version 1)
Quarter: 2013Q3

REPORT INFORMATION
  Report Type: Spontaneous
  Country: US (occurrence: US)
  Receive Date: 20130923
  Receipt Date: 20130923
  Transmission Date: 20140515
  Serious: No
  Sender: FDA-Public Use
  Company Number: US-009507513-1309USA006441

PATIENT
  Age: 40 Year
  Sex: Male

DRUGS (1)
  1. LIPTRUZET [Suspect]
     Indication: HYPERCHOLESTEROLAEMIA
     Dosage: 10/40 MG/ ONCE DAILY
     Route: 048

REACTIONS (3)
  - Movement disorder [Recovered/Resolved]
  - Muscle tightness [Recovered/Resolved]
  - Asthenia [Recovered/Resolved]
